FAERS Safety Report 14364134 (Version 1)
Quarter: 2018Q1

REPORT INFORMATION
  Report Type: Spontaneous
  Country: US (occurrence: US)
  Receive Date: 20180108
  Receipt Date: 20180108
  Transmission Date: 20180509
  Serious: Yes (Other)
  Sender: FDA-Public Use
  Company Number: US-IPSEN BIOPHARMACEUTICALS, INC.-2018-00016

PATIENT
  Age: 64 Year
  Sex: Female
  Weight: 89.4 kg

DRUGS (8)
  1. ALEVE [Concomitant]
     Active Substance: NAPROXEN SODIUM
  2. SOMATULINE DEPOT [Suspect]
     Active Substance: LANREOTIDE ACETATE
     Indication: NEUROENDOCRINE TUMOUR
     Dosage: 120 MG
     Route: 030
     Dates: start: 20171017
  3. MUCINEX [Concomitant]
     Active Substance: GUAIFENESIN
     Indication: HYPERSENSITIVITY
  4. CLARITIN [Concomitant]
     Active Substance: LORATADINE
     Indication: HYPERSENSITIVITY
  5. ASPIRIN. [Concomitant]
     Active Substance: ASPIRIN
  6. ALLEGRA [Concomitant]
     Active Substance: FEXOFENADINE HYDROCHLORIDE
     Indication: HYPERSENSITIVITY
  7. MELOXICAM. [Suspect]
     Active Substance: MELOXICAM
     Indication: PRODUCT USED FOR UNKNOWN INDICATION
     Route: 048
  8. ADVIL [Concomitant]
     Active Substance: IBUPROFEN

REACTIONS (8)
  - Secretion discharge [Recovering/Resolving]
  - Breast pain [Recovered/Resolved]
  - Urticaria [Recovering/Resolving]
  - Blister [Recovering/Resolving]
  - Incorrect route of drug administration [Unknown]
  - Surgery [Unknown]
  - Skin irritation [Recovering/Resolving]
  - Skin lesion [Recovering/Resolving]

NARRATIVE: CASE EVENT DATE: 20171106
